FAERS Safety Report 14836006 (Version 2)
Quarter: 2018Q2

REPORT INFORMATION
  Report Type: Spontaneous
  Country: CN (occurrence: CN)
  Receive Date: 20180502
  Receipt Date: 20180514
  Transmission Date: 20180711
  Serious: Yes (Other)
  Sender: FDA-Public Use
  Company Number: CN-ROCHE-2117725

PATIENT
  Age: 18 Year
  Sex: Female

DRUGS (1)
  1. LUCENTIS [Suspect]
     Active Substance: RANIBIZUMAB
     Indication: IRIS NEOVASCULARISATION
     Route: 031

REACTIONS (1)
  - Vitreous haemorrhage [Not Recovered/Not Resolved]
